FAERS Safety Report 24410258 (Version 2)
Quarter: 2024Q4

REPORT INFORMATION
  Report Type: Spontaneous
  Country: DE (occurrence: DE)
  Receive Date: 20241008
  Receipt Date: 20241108
  Transmission Date: 20250114
  Serious: Yes (Hospitalization, Other)
  Sender: AUROBINDO
  Company Number: DE-002147023-NVSC2023DE188578

PATIENT
  Age: 74 Year
  Sex: Male
  Weight: 73.5 kg

DRUGS (3)
  1. IRINOTECAN [Suspect]
     Active Substance: IRINOTECAN
     Indication: Colorectal cancer metastatic
     Dosage: 344 MILLIGRAM
     Route: 042
     Dates: start: 20230515, end: 20230822
  2. FLUOROURACIL [Suspect]
     Active Substance: FLUOROURACIL
     Indication: Colorectal cancer metastatic
     Dosage: 4584 MILLIGRAM
     Route: 042
     Dates: start: 20230515, end: 20230822
  3. FLUOROURACIL [Suspect]
     Active Substance: FLUOROURACIL
     Dosage: 764 MILLIGRAM
     Route: 042
     Dates: start: 20230515, end: 20230822

REACTIONS (1)
  - Neutropenic sepsis [Recovering/Resolving]

NARRATIVE: CASE EVENT DATE: 20230829
